FAERS Safety Report 13450153 (Version 1)
Quarter: 2017Q2

REPORT INFORMATION
  Report Type: Spontaneous
  Country: US (occurrence: US)
  Receive Date: 20170417
  Receipt Date: 20170417
  Transmission Date: 20170830
  Serious: No
  Sender: FDA-Public Use
  Company Number: US-BION-20160163

PATIENT
  Age: 44 Year
  Sex: Female
  Weight: 49.9 kg

DRUGS (1)
  1. ALEVE [Suspect]
     Active Substance: NAPROXEN SODIUM
     Indication: MULTIPLE ALLERGIES
     Dosage: 1 DF ONCE DAILY USED TWICE
     Route: 048
     Dates: start: 20160429, end: 20160511

REACTIONS (1)
  - Drug ineffective [Unknown]
